FAERS Safety Report 24304353 (Version 1)
Quarter: 2024Q3

REPORT INFORMATION
  Report Type: Spontaneous
  Country: US (occurrence: US)
  Receive Date: 20240910
  Receipt Date: 20240910
  Transmission Date: 20241017
  Serious: Yes (Disabling, Other)
  Sender: CB FLEET
  Company Number: US-PRESTIGE-202408-US-002811

PATIENT
  Sex: Female

DRUGS (2)
  1. CLEAR EYES TRIPLE ACTION [Suspect]
     Active Substance: POLYVINYL ALCOHOL\POVIDONE\TETRAHYDROZOLINE HYDROCHLORIDE
     Indication: Eye irritation
     Dosage: USED THEM ON AND OFF FOR A COUPLE YEARS
     Route: 047
  2. CLEAR EYES TRIPLE ACTION [Suspect]
     Active Substance: POLYVINYL ALCOHOL\POVIDONE\TETRAHYDROZOLINE HYDROCHLORIDE
     Indication: Ocular hyperaemia

REACTIONS (1)
  - Pseudomonas infection [Recovering/Resolving]
